FAERS Safety Report 17753024 (Version 2)
Quarter: 2020Q2

REPORT INFORMATION
  Report Type: Report from Study
  Country: None (occurrence: US)
  Receive Date: 20200506
  Receipt Date: 20200520
  Transmission Date: 20200714
  Serious: No
  Sender: FDA-Public Use
  Company Number: US-ABBVIE-20K-163-3390146-00

PATIENT
  Age: 55 Year
  Sex: Male
  Weight: 85.81 kg

DRUGS (3)
  1. OXYCODONE [Concomitant]
     Active Substance: OXYCODONE
     Indication: ARTHRALGIA
  2. RINVOQ [Suspect]
     Active Substance: UPADACITINIB
     Indication: RHEUMATOID ARTHRITIS
     Dosage: IN THE EVENING
     Route: 048
     Dates: start: 201909
  3. OXYCONTIN [Concomitant]
     Active Substance: OXYCODONE HYDROCHLORIDE
     Indication: ARTHRALGIA

REACTIONS (9)
  - Arthralgia [Recovering/Resolving]
  - Pre-existing condition improved [Recovering/Resolving]
  - Therapeutic response unexpected [Recovering/Resolving]
  - Joint swelling [Recovering/Resolving]
  - Localised infection [Unknown]
  - Gout [Recovering/Resolving]
  - Arthralgia [Recovering/Resolving]
  - Peripheral swelling [Recovering/Resolving]
  - Gout [Not Recovered/Not Resolved]

NARRATIVE: CASE EVENT DATE: 201911
